FAERS Safety Report 18460244 (Version 5)
Quarter: 2020Q4

REPORT INFORMATION
  Report Type: Spontaneous
  Country: US (occurrence: US)
  Receive Date: 20201104
  Receipt Date: 20201221
  Transmission Date: 20210114
  Serious: Yes (Other)
  Sender: FDA-Public Use
  Company Number: US-GLAXOSMITHKLINE-US2020AMR214400

PATIENT
  Age: 67 Year
  Sex: Female

DRUGS (4)
  1. ZEJULA [Interacting]
     Active Substance: NIRAPARIB
     Dosage: 100 MG, QD
     Route: 048
  2. ZEJULA [Suspect]
     Active Substance: NIRAPARIB
     Indication: OVARIAN CANCER
     Dosage: UNK
  3. KEYTRUDA [Interacting]
     Active Substance: PEMBROLIZUMAB
     Indication: PRODUCT USED FOR UNKNOWN INDICATION
     Dosage: UNK
  4. ZEJULA [Interacting]
     Active Substance: NIRAPARIB
     Dosage: 200 MG, QD
     Route: 048
     Dates: start: 20201009

REACTIONS (10)
  - White blood cell count decreased [Recovered/Resolved]
  - Stomatitis [Recovered/Resolved]
  - Blood creatinine increased [Unknown]
  - Blood urea increased [Unknown]
  - Drug interaction [Unknown]
  - Renal impairment [Unknown]
  - Diarrhoea [Unknown]
  - Skin irritation [Recovered/Resolved]
  - Fatigue [Recovering/Resolving]
  - Renal function test abnormal [Not Recovered/Not Resolved]

NARRATIVE: CASE EVENT DATE: 202010
